FAERS Safety Report 12036810 (Version 2)
Quarter: 2016Q1

REPORT INFORMATION
  Report Type: Spontaneous
  Country: US (occurrence: US)
  Receive Date: 20160208
  Receipt Date: 20160304
  Transmission Date: 20160526
  Serious: No
  Sender: FDA-Public Use
  Company Number: US-ASTRAZENECA-2016SE10887

PATIENT
  Age: 83 Year
  Sex: Male
  Weight: 62.6 kg

DRUGS (4)
  1. TENORMIN [Suspect]
     Active Substance: ATENOLOL
     Indication: PRODUCT USED FOR UNKNOWN INDICATION
     Dosage: GENERIC
     Route: 065
  2. TENORMIN [Suspect]
     Active Substance: ATENOLOL
     Indication: PRODUCT USED FOR UNKNOWN INDICATION
     Dosage: ALMATICA
     Route: 065
  3. TENORMIN [Suspect]
     Active Substance: ATENOLOL
     Indication: PRODUCT USED FOR UNKNOWN INDICATION
     Route: 048
     Dates: start: 20151231, end: 20160102
  4. TOPROL XL [Suspect]
     Active Substance: METOPROLOL SUCCINATE
     Route: 048

REACTIONS (6)
  - Limb discomfort [Recovered/Resolved]
  - Drug ineffective [Recovered/Resolved]
  - Chest discomfort [Recovered/Resolved]
  - Product substitution issue [Recovered/Resolved]
  - Head discomfort [Recovered/Resolved]
  - Intentional product use issue [Recovered/Resolved]
